FAERS Safety Report 8168207-8 (Version None)
Quarter: 2012Q1

REPORT INFORMATION
  Report Type: 
  Country: None (occurrence: None)
  Receive Date: 20120227
  Receipt Date: 20120223
  Transmission Date: 20120608
  Serious: Yes (Other)
  Sender: FDA-Public Use
  Company Number: US-PFIZER INC-2012048827

PATIENT
  Sex: Female
  Weight: 49.887 kg

DRUGS (3)
  1. LYRICA [Suspect]
     Indication: FIBROMYALGIA
  2. NAPROXEN [Concomitant]
     Indication: PAIN
     Dosage: UNK
  3. LYRICA [Suspect]
     Indication: PAIN
     Dosage: 100 MG, 1X/DAY
     Route: 048

REACTIONS (4)
  - MOVEMENT DISORDER [None]
  - BEDRIDDEN [None]
  - HYPERAESTHESIA [None]
  - ACTIVITIES OF DAILY LIVING IMPAIRED [None]
